FAERS Safety Report 19258896 (Version 1)
Quarter: 2021Q2

REPORT INFORMATION
  Report Type: Spontaneous
  Country: CZ (occurrence: CZ)
  Receive Date: 20210514
  Receipt Date: 20210514
  Transmission Date: 20210717
  Serious: Yes (Other)
  Sender: FDA-Public Use
  Company Number: CZ-MYLANLABS-2021M1027451

PATIENT
  Age: 39 Year
  Sex: Female

DRUGS (6)
  1. PERTUZUMAB. [Suspect]
     Active Substance: PERTUZUMAB
     Indication: CHEMOTHERAPY
     Dosage: UNK
     Dates: start: 201503, end: 201507
  2. LETROZOLE. [Suspect]
     Active Substance: LETROZOLE
     Indication: BREAST CANCER
     Dosage: UNK
     Dates: start: 2015
  3. PACLITAXEL MYLAN [Suspect]
     Active Substance: PACLITAXEL
     Indication: BREAST CANCER
     Dosage: UNK
     Dates: start: 2018
  4. DOCETAXEL. [Concomitant]
     Active Substance: DOCETAXEL
     Dosage: UNK
     Dates: start: 201503, end: 201507
  5. TRASTUZUMAB. [Suspect]
     Active Substance: TRASTUZUMAB
  6. FULVESTRANT. [Suspect]
     Active Substance: FULVESTRANT
     Indication: HORMONE THERAPY
     Dosage: UNK
     Dates: end: 201912

REACTIONS (6)
  - Arthralgia [Unknown]
  - Joint stiffness [Unknown]
  - Fatigue [Unknown]
  - Myalgia [Unknown]
  - Neuropathy peripheral [Unknown]
  - Asthenia [Unknown]

NARRATIVE: CASE EVENT DATE: 2015
